FAERS Safety Report 17026266 (Version 1)
Quarter: 2019Q4

REPORT INFORMATION
  Report Type: Spontaneous
  Country: US (occurrence: US)
  Receive Date: 20191113
  Receipt Date: 20191113
  Transmission Date: 20200122
  Serious: Yes (Other)
  Sender: FDA-Public Use
  Company Number: US-NOVOPROD-695051

PATIENT
  Age: 64 Year
  Sex: Female

DRUGS (1)
  1. LEVEMIR [Suspect]
     Active Substance: INSULIN DETEMIR
     Indication: TYPE 2 DIABETES MELLITUS
     Dosage: UNK
     Route: 058
     Dates: start: 201907

REACTIONS (6)
  - Blood glucose increased [Recovered/Resolved]
  - Morton^s neuralgia [Unknown]
  - Drug intolerance [Unknown]
  - Weight increased [Unknown]
  - Peripheral swelling [Unknown]
  - Tendon sheath incision [Unknown]

NARRATIVE: CASE EVENT DATE: 2019
